FAERS Safety Report 19694548 (Version 1)
Quarter: 2021Q3

REPORT INFORMATION
  Report Type: Spontaneous
  Country: US (occurrence: US)
  Receive Date: 20210812
  Receipt Date: 20210812
  Transmission Date: 20211014
  Serious: No
  Sender: FDA-Public Use
  Company Number: US-BAUSCH-BL-2021-025163

PATIENT
  Age: 71 Year
  Sex: Female

DRUGS (3)
  1. INTEGRATED FLOW?THROUGH BRUSH APPLICATOR [DEVICE] [Suspect]
     Active Substance: DEVICE
     Indication: ONYCHOMYCOSIS
     Route: 061
  2. LEVOTHYROXINE. [Concomitant]
     Active Substance: LEVOTHYROXINE
     Indication: HYPOTHYROIDISM
  3. JUBLIA [Suspect]
     Active Substance: EFINACONAZOLE
     Indication: ONYCHOMYCOSIS
     Dosage: AT NIGHT
     Route: 061
     Dates: start: 202104

REACTIONS (3)
  - Product packaging quantity issue [Unknown]
  - Patient dissatisfaction with treatment [Unknown]
  - Inability to afford medication [Unknown]

NARRATIVE: CASE EVENT DATE: 2021
